FAERS Safety Report 19089477 (Version 3)
Quarter: 2022Q1

REPORT INFORMATION
  Report Type: Report from Study
  Country: UG (occurrence: UG)
  Receive Date: 20210403
  Receipt Date: 20220217
  Transmission Date: 20220423
  Serious: Yes (Hospitalization, Other)
  Sender: FDA-Public Use
  Company Number: UG-CIPLA LTD.-2021UG02462

PATIENT

DRUGS (3)
  1. LOPINAVIR\RITONAVIR [Suspect]
     Active Substance: LOPINAVIR\RITONAVIR
     Indication: HIV infection
     Dosage: 4 DOSAGE FORM, QD (80MG/20MG BID DAILY)
     Route: 048
     Dates: start: 20180104, end: 20180227
  2. ABACAVIR\LAMIVUDINE [Suspect]
     Active Substance: ABACAVIR\LAMIVUDINE
     Indication: HIV infection
     Dosage: 2 DOSAGE FORM, QD (60MG/30MG BID DAILY)
     Route: 048
     Dates: start: 20180104, end: 20180227
  3. COTRIMOXAZOLE [Concomitant]
     Active Substance: SULFAMETHOXAZOLE\TRIMETHOPRIM
     Indication: Prophylaxis
     Dosage: UNK
     Route: 065
     Dates: start: 20180104, end: 20180305

REACTIONS (2)
  - Pneumonia measles [None]
  - Pulmonary tuberculosis [None]

NARRATIVE: CASE EVENT DATE: 20180130
